FAERS Safety Report 25211450 (Version 6)
Quarter: 2025Q3

REPORT INFORMATION
  Report Type: Spontaneous
  Country: JP (occurrence: JP)
  Receive Date: 20250418
  Receipt Date: 20250812
  Transmission Date: 20251020
  Serious: Yes (Death, Life-Threatening, Hospitalization, Other)
  Sender: BRISTOL-MYERS SQUIBB COMPANY
  Company Number: JP-ONO-2025JP006848

PATIENT
  Age: 78 Year
  Sex: Male
  Weight: 49 kg

DRUGS (2)
  1. OPDIVO [Suspect]
     Active Substance: NIVOLUMAB
     Indication: Gastric cancer
     Dosage: 480 MG, Q4W
     Route: 041
     Dates: start: 20250314, end: 20250314
  2. SODIUM CHLORIDE [Concomitant]
     Active Substance: SODIUM CHLORIDE
     Indication: Product used for unknown indication
     Route: 041
     Dates: start: 20250314, end: 20250314

REACTIONS (20)
  - Cardiac failure [Fatal]
  - Conduction disorder [Fatal]
  - Myocarditis [Fatal]
  - Malaise [Unknown]
  - Eyelid ptosis [Unknown]
  - Upper gastrointestinal haemorrhage [Recovering/Resolving]
  - Cytokine release syndrome [Unknown]
  - Immune-mediated hepatitis [Not Recovered/Not Resolved]
  - Hepatobiliary disease [Not Recovered/Not Resolved]
  - Pyrexia [Unknown]
  - Muscular weakness [Unknown]
  - Immune-mediated myositis [Unknown]
  - Facial paresis [Not Recovered/Not Resolved]
  - Eyelid function disorder [Unknown]
  - Dysarthria [Unknown]
  - Antiacetylcholine receptor antibody positive [Unknown]
  - Decreased appetite [Unknown]
  - Dizziness [Unknown]
  - Back pain [Unknown]
  - Pain in extremity [Unknown]

NARRATIVE: CASE EVENT DATE: 20250403
